FAERS Safety Report 7578227-X (Version None)
Quarter: 2011Q2

REPORT INFORMATION
  Report Type: 
  Country: None (occurrence: None)
  Receive Date: 20110628
  Receipt Date: 20110621
  Transmission Date: 20111010
  Serious: Yes (Other)
  Sender: FDA-Public Use
  Company Number: B0728278A

PATIENT
  Age: 6 Decade
  Sex: Female

DRUGS (2)
  1. LAMICTAL [Suspect]
     Indication: DEPRESSION
     Route: 048
  2. CLONAZEPAM [Concomitant]
     Route: 048

REACTIONS (1)
  - SIMPLE PARTIAL SEIZURES [None]
